FAERS Safety Report 10314309 (Version 2)
Quarter: 2014Q3

REPORT INFORMATION
  Report Type: Spontaneous
  Country: US (occurrence: US)
  Receive Date: 20140718
  Receipt Date: 20140807
  Transmission Date: 20150326
  Serious: Yes (Hospitalization)
  Sender: FDA-Public Use
  Company Number: US-BAYER-2014-108452

PATIENT
  Age: 44 Year
  Sex: Female
  Weight: 77.98 kg

DRUGS (9)
  1. VICODIN [Concomitant]
     Active Substance: ACETAMINOPHEN\HYDROCODONE BITARTRATE
     Indication: CHEST PAIN
     Dosage: 5/500MG
  2. VALIUM [Concomitant]
     Active Substance: DIAZEPAM
     Indication: MIGRAINE
  3. LIPITOR [Concomitant]
     Active Substance: ATORVASTATIN CALCIUM
     Dosage: 20 MG, UNK
  4. TORADOL [Concomitant]
     Active Substance: KETOROLAC TROMETHAMINE
     Dosage: 60 MG, UNK
     Route: 030
  5. VICODIN [Concomitant]
     Active Substance: ACETAMINOPHEN\HYDROCODONE BITARTRATE
     Indication: HEADACHE
  6. BENADRYL [Concomitant]
     Active Substance: DIPHENHYDRAMINE HYDROCHLORIDE
     Dosage: 25 MG, UNK
     Route: 048
  7. METFORMIN [Concomitant]
     Active Substance: METFORMIN HYDROCHLORIDE
     Dosage: 500 MG, BID
  8. LEXAPRO [Concomitant]
     Active Substance: ESCITALOPRAM OXALATE
     Dosage: 10 MG, UNK
  9. YASMIN [Suspect]
     Active Substance: DROSPIRENONE\ETHINYL ESTRADIOL
     Dosage: UNK
     Route: 048
     Dates: start: 200405, end: 200407

REACTIONS (7)
  - Emotional distress [None]
  - Pain [Recovered/Resolved]
  - Pain [None]
  - Injury [Recovered/Resolved]
  - Anxiety [None]
  - General physical health deterioration [Recovered/Resolved]
  - Pulmonary embolism [Recovered/Resolved]

NARRATIVE: CASE EVENT DATE: 20040914
